FAERS Safety Report 10175478 (Version 1)
Quarter: 2014Q2

REPORT INFORMATION
  Report Type: Spontaneous
  Country: HK (occurrence: HK)
  Receive Date: 20140515
  Receipt Date: 20140515
  Transmission Date: 20141212
  Serious: Yes (Hospitalization)
  Sender: FDA-Public Use
  Company Number: PHHY2014HK056965

PATIENT
  Age: 71 Year
  Sex: 0

DRUGS (3)
  1. RIFAMPICIN [Suspect]
     Indication: LUNG INFECTION
  2. ISONIAZID [Suspect]
     Indication: LUNG INFECTION
  3. ETHAMBUTOL [Suspect]
     Indication: LUNG INFECTION

REACTIONS (3)
  - Vision blurred [Unknown]
  - Abdominal discomfort [Unknown]
  - Drug intolerance [Unknown]
